FAERS Safety Report 6507094-8 (Version None)
Quarter: 2009Q4

REPORT INFORMATION
  Report Type: 
  Country: None (occurrence: None)
  Receive Date: 20091221
  Receipt Date: 20091209
  Transmission Date: 20100525
  Serious: Yes (Hospitalization)
  Sender: FDA-Public Use
  Company Number: PHHY2009FR54827

PATIENT
  Age: 50 Year
  Sex: Female

DRUGS (1)
  1. EXTAVIA [Suspect]
     Indication: MULTIPLE SCLEROSIS
     Dosage: 1.2 ML, QOD
     Dates: start: 20090901

REACTIONS (4)
  - ASTHENIA [None]
  - DIZZINESS [None]
  - FALL [None]
  - MULTIPLE SCLEROSIS RELAPSE [None]
